FAERS Safety Report 24175349 (Version 1)
Quarter: 2024Q3

REPORT INFORMATION
  Report Type: Spontaneous
  Country: US (occurrence: US)
  Receive Date: 20240805
  Receipt Date: 20240805
  Transmission Date: 20241017
  Serious: Yes (Other)
  Sender: ELI LILLY AND CO
  Company Number: US-ELI_LILLY_AND_COMPANY-US202407016401

PATIENT
  Age: 71 Year
  Sex: Female

DRUGS (26)
  1. MOUNJARO [Suspect]
     Active Substance: TIRZEPATIDE
     Indication: Diabetes mellitus
     Dosage: 2.5 MG, UNKNOWN
     Route: 058
     Dates: start: 202404
  2. MOUNJARO [Suspect]
     Active Substance: TIRZEPATIDE
     Indication: Diabetes mellitus
     Dosage: 2.5 MG, UNKNOWN
     Route: 058
     Dates: start: 202404
  3. MOUNJARO [Suspect]
     Active Substance: TIRZEPATIDE
     Indication: Diabetes mellitus
     Dosage: 2.5 MG, UNKNOWN
     Route: 058
     Dates: start: 202404
  4. MOUNJARO [Suspect]
     Active Substance: TIRZEPATIDE
     Indication: Diabetes mellitus
     Dosage: 2.5 MG, UNKNOWN
     Route: 058
     Dates: start: 202404
  5. MOUNJARO [Suspect]
     Active Substance: TIRZEPATIDE
     Indication: Myocardial infarction
  6. MOUNJARO [Suspect]
     Active Substance: TIRZEPATIDE
     Indication: Myocardial infarction
  7. MOUNJARO [Suspect]
     Active Substance: TIRZEPATIDE
     Indication: Myocardial infarction
  8. MOUNJARO [Suspect]
     Active Substance: TIRZEPATIDE
     Indication: Myocardial infarction
  9. MOUNJARO [Suspect]
     Active Substance: TIRZEPATIDE
     Indication: Cerebrovascular accident
  10. MOUNJARO [Suspect]
     Active Substance: TIRZEPATIDE
     Indication: Cerebrovascular accident
  11. MOUNJARO [Suspect]
     Active Substance: TIRZEPATIDE
     Indication: Cerebrovascular accident
  12. MOUNJARO [Suspect]
     Active Substance: TIRZEPATIDE
     Indication: Cerebrovascular accident
  13. MOUNJARO [Suspect]
     Active Substance: TIRZEPATIDE
     Indication: Diabetes mellitus
     Dosage: 5 MG, UNKNOWN
     Route: 058
     Dates: start: 202404
  14. MOUNJARO [Suspect]
     Active Substance: TIRZEPATIDE
     Indication: Diabetes mellitus
     Dosage: 5 MG, UNKNOWN
     Route: 058
     Dates: start: 202404
  15. MOUNJARO [Suspect]
     Active Substance: TIRZEPATIDE
     Indication: Diabetes mellitus
     Dosage: 5 MG, UNKNOWN
     Route: 058
     Dates: start: 202404
  16. MOUNJARO [Suspect]
     Active Substance: TIRZEPATIDE
     Indication: Diabetes mellitus
     Dosage: 5 MG, UNKNOWN
     Route: 058
     Dates: start: 202404
  17. MOUNJARO [Suspect]
     Active Substance: TIRZEPATIDE
     Indication: Myocardial infarction
  18. MOUNJARO [Suspect]
     Active Substance: TIRZEPATIDE
     Indication: Myocardial infarction
  19. MOUNJARO [Suspect]
     Active Substance: TIRZEPATIDE
     Indication: Myocardial infarction
  20. MOUNJARO [Suspect]
     Active Substance: TIRZEPATIDE
     Indication: Myocardial infarction
  21. MOUNJARO [Suspect]
     Active Substance: TIRZEPATIDE
     Indication: Cerebrovascular accident
  22. MOUNJARO [Suspect]
     Active Substance: TIRZEPATIDE
     Indication: Cerebrovascular accident
  23. MOUNJARO [Suspect]
     Active Substance: TIRZEPATIDE
     Indication: Cerebrovascular accident
  24. MOUNJARO [Suspect]
     Active Substance: TIRZEPATIDE
     Indication: Cerebrovascular accident
  25. HUMALOG [Suspect]
     Active Substance: INSULIN LISPRO
     Indication: Product used for unknown indication
     Dosage: UNK UNK, UNKNOWN
     Route: 065
  26. HUMALOG KWIKPEN [Suspect]
     Active Substance: INSULIN LISPRO
     Indication: Product used for unknown indication
     Dosage: UNK UNK, UNKNOWN
     Route: 065

REACTIONS (6)
  - Cerebrovascular accident [Recovering/Resolving]
  - Myocardial infarction [Recovering/Resolving]
  - Complication associated with device [Unknown]
  - Visual impairment [Not Recovered/Not Resolved]
  - Weight increased [Not Recovered/Not Resolved]
  - Wrong technique in product usage process [Unknown]

NARRATIVE: CASE EVENT DATE: 20240601
